FAERS Safety Report 8805735 (Version 1)
Quarter: 2012Q4

REPORT INFORMATION
  Report Type: 
  Country: RO (occurrence: RO)
  Receive Date: 20120924
  Receipt Date: 20120924
  Transmission Date: 20130627
  Serious: Yes (Hospitalization)
  Sender: FDA-Public Use
  Company Number: RO-ROCHE-1132616

PATIENT
  Age: 39 Year
  Sex: Female

DRUGS (8)
  1. TOCILIZUMAB [Suspect]
     Indication: RHEUMATOID ARTHRITIS
     Route: 042
     Dates: start: 20120301
  2. MEDROL [Concomitant]
     Indication: RHEUMATOID ARTHRITIS
     Route: 048
  3. PLAQUENIL [Concomitant]
     Indication: RHEUMATOID ARTHRITIS
     Route: 048
  4. IMURAN [Concomitant]
     Indication: RHEUMATOID ARTHRITIS
     Route: 048
  5. FERRO-GRAD FOLIC [Concomitant]
     Indication: ANAEMIA
     Route: 048
  6. VESSEL DUE [Concomitant]
     Indication: LUPUS VASCULITIS
     Route: 048
  7. PENTOXIFYLLINE [Concomitant]
     Indication: LUPUS VASCULITIS
     Route: 048
  8. ASPENTER [Concomitant]
     Indication: HYPERTENSION
     Route: 048

REACTIONS (1)
  - Eosinophilia [Recovering/Resolving]
